FAERS Safety Report 5036827-5 (Version None)
Quarter: 2006Q2

REPORT INFORMATION
  Report Type: 
  Country: None (occurrence: None)
  Receive Date: 20060623
  Receipt Date: 20060608
  Transmission Date: 20061013
  Serious: Yes (Hospitalization)
  Sender: FDA-Public Use
  Company Number: 2006074038

PATIENT
  Age: 63 Year
  Sex: Female

DRUGS (5)
  1. NEURONTIN [Suspect]
     Indication: ILL-DEFINED DISORDER
     Dosage: 300 MG (1 D) ORAL
     Route: 048
     Dates: start: 20060506, end: 20060509
  2. ACYCLOVIR [Suspect]
     Indication: ILL-DEFINED DISORDER
     Dosage: 250 MG (1 D) INTRAVENOUS
     Route: 042
     Dates: start: 20060504, end: 20060509
  3. DUPHALAC [Concomitant]
  4. HEPARIN [Concomitant]
  5. NEXIUM [Concomitant]

REACTIONS (7)
  - AORTIC VALVE INCOMPETENCE [None]
  - CHOLECYSTITIS ACUTE [None]
  - DEPRESSED LEVEL OF CONSCIOUSNESS [None]
  - ELECTROENCEPHALOGRAM ABNORMAL [None]
  - HAEMORRHAGE [None]
  - MYOCLONUS [None]
  - OVERDOSE [None]
